FAERS Safety Report 4592201-7 (Version None)
Quarter: 2005Q1

REPORT INFORMATION
  Report Type: 
  Country: None (occurrence: None)
  Receive Date: 20050228
  Receipt Date: 20050217
  Transmission Date: 20050727
  Serious: Yes (Hospitalization)
  Sender: FDA-Public Use
  Company Number: FR-JNJFOC-20050204799

PATIENT
  Age: 54 Year
  Sex: Female

DRUGS (11)
  1. REMICADE [Suspect]
     Dosage: THIS WAS THE 3RD INFUSION.
     Route: 042
  2. REMICADE [Suspect]
     Route: 042
  3. REMICADE [Suspect]
     Indication: SPONDYLOARTHROPATHY
     Route: 042
  4. CORTANCYL [Concomitant]
     Route: 065
  5. CORTANCYL [Concomitant]
     Route: 065
  6. METHOTREXATE [Concomitant]
     Route: 065
  7. POLARAMINE [Concomitant]
     Route: 065
  8. DAFALGAN [Concomitant]
     Route: 065
  9. XANAX [Concomitant]
     Route: 065
  10. STILNOX [Concomitant]
     Route: 065
  11. DEROXAT [Concomitant]
     Route: 065

REACTIONS (1)
  - TUBERCULOSIS [None]
